FAERS Safety Report 8256312-7 (Version None)
Quarter: 2012Q2

REPORT INFORMATION
  Report Type: 
  Country: None (occurrence: None)
  Receive Date: 20120403
  Receipt Date: 20120326
  Transmission Date: 20120825
  Serious: Yes (Hospitalization, Other)
  Sender: FDA-Public Use
  Company Number: US-ASTRAZENECA-2011SE75713

PATIENT
  Age: 63 Year
  Sex: Female

DRUGS (1)
  1. NEXIUM [Suspect]
     Route: 048

REACTIONS (10)
  - FALL [None]
  - INJURY [None]
  - ABDOMINAL DISCOMFORT [None]
  - DRUG DOSE OMISSION [None]
  - VIRAL INFECTION [None]
  - MALAISE [None]
  - PAIN [None]
  - GASTROINTESTINAL INFECTION [None]
  - RIB FRACTURE [None]
  - GASTROINTESTINAL DISORDER [None]
